FAERS Safety Report 9326079 (Version 1)
Quarter: 2013Q2

REPORT INFORMATION
  Report Type: Spontaneous
  Country: US (occurrence: US)
  Receive Date: 20130604
  Receipt Date: 20130604
  Transmission Date: 20140414
  Serious: No
  Sender: FDA-Public Use
  Company Number: US-TEVA-409553USA

PATIENT
  Age: 71 Year
  Sex: Female
  Weight: 72.64 kg

DRUGS (6)
  1. PROAIR HFA [Suspect]
     Indication: PNEUMONIA
     Dates: start: 20130531
  2. ATENOLOL [Concomitant]
     Indication: CARDIAC DISORDER
  3. LISINOPRIL [Concomitant]
     Indication: HYPERTENSION
  4. CHOLESTEROL MEDICATION [Concomitant]
     Indication: BLOOD CHOLESTEROL INCREASED
  5. ANTIBIOTICS [Concomitant]
  6. NEBULIZER [Concomitant]
     Indication: PNEUMONIA

REACTIONS (5)
  - Choking sensation [Recovering/Resolving]
  - Dyspnoea [Recovering/Resolving]
  - Headache [Recovering/Resolving]
  - Nausea [Recovered/Resolved]
  - Malaise [Recovering/Resolving]
